FAERS Safety Report 24677535 (Version 1)
Quarter: 2024Q4

REPORT INFORMATION
  Report Type: Spontaneous
  Country: GB (occurrence: GB)
  Receive Date: 20241129
  Receipt Date: 20241129
  Transmission Date: 20250115
  Serious: Yes (Other)
  Sender: DR REDDYS
  Company Number: None

PATIENT
  Sex: Female

DRUGS (2)
  1. FULVESTRANT [Suspect]
     Active Substance: FULVESTRANT
     Indication: Product used for unknown indication
     Dosage: UNK
  2. KISQALI [Suspect]
     Active Substance: RIBOCICLIB
     Indication: Product used for unknown indication
     Dosage: UNK

REACTIONS (8)
  - Lower respiratory tract infection [Unknown]
  - Fall [Unknown]
  - Joint dislocation [Unknown]
  - Urine odour abnormal [Unknown]
  - Feeling abnormal [Unknown]
  - Vision blurred [Unknown]
  - Abdominal pain [Unknown]
  - Headache [Unknown]
